FAERS Safety Report 21650712 (Version 1)
Quarter: 2022Q4

REPORT INFORMATION
  Report Type: Spontaneous
  Country: US (occurrence: US)
  Receive Date: 20221128
  Receipt Date: 20221128
  Transmission Date: 20230113
  Serious: No
  Sender: FDA-Public Use
  Company Number: US-PFIZER INC-PV202200109391

PATIENT
  Age: 59 Year
  Sex: Female

DRUGS (3)
  1. HYDROXYZINE PAMOATE [Suspect]
     Active Substance: HYDROXYZINE PAMOATE
     Indication: Pruritus
     Dosage: UNK
  2. TUKYSA [Suspect]
     Active Substance: TUCATINIB
     Indication: Breast cancer female
     Dosage: UNK
  3. XELODA [Suspect]
     Active Substance: CAPECITABINE
     Dosage: UNK

REACTIONS (4)
  - Fatigue [Unknown]
  - Nail disorder [Unknown]
  - Dry skin [Unknown]
  - Off label use [Unknown]
